FAERS Safety Report 10453667 (Version 1)
Quarter: 2014Q3

REPORT INFORMATION
  Report Type: Spontaneous
  Country: US (occurrence: US)
  Receive Date: 20140915
  Receipt Date: 20140915
  Transmission Date: 20150326
  Serious: No
  Sender: FDA-Public Use
  Company Number: US-BRISTOL-MYERS SQUIBB COMPANY-21217476

PATIENT
  Age: 72 Year
  Sex: Female

DRUGS (7)
  1. PREDNISONE. [Concomitant]
     Active Substance: PREDNISONE
  2. FOLIC ACID. [Concomitant]
     Active Substance: FOLIC ACID
  3. NORVASC [Concomitant]
     Active Substance: AMLODIPINE BESYLATE
  4. ATENOLOL. [Concomitant]
     Active Substance: ATENOLOL
  5. METHOTREXATE [Concomitant]
     Active Substance: METHOTREXATE
  6. VITAMIN D [Concomitant]
     Active Substance: CHOLECALCIFEROL
  7. ELIQUIS [Suspect]
     Active Substance: APIXABAN
     Dosage: FOR TWO WEEKS
     Dates: start: 2014

REACTIONS (2)
  - Blood urine present [Unknown]
  - Chromaturia [Unknown]

NARRATIVE: CASE EVENT DATE: 20140716
